FAERS Safety Report 13291806 (Version 1)
Quarter: 2017Q1

REPORT INFORMATION
  Report Type: Spontaneous
  Country: US (occurrence: US)
  Receive Date: 20170302
  Receipt Date: 20170302
  Transmission Date: 20170428
  Serious: No
  Sender: FDA-Public Use
  Company Number: None

PATIENT
  Age: 90 Year
  Sex: Female

DRUGS (2)
  1. IMATINIB MESYLATE 100MG SUN PHARMACEUTICAL INDUSTRIES, INC. [Suspect]
     Active Substance: IMATINIB MESYLATE
     Indication: SOFT TISSUE SARCOMA
     Route: 048
     Dates: start: 20160505
  2. IMATINIB MESYLATE 100MG SUN PHARMACEUTICAL INDUSTRIES, INC. [Suspect]
     Active Substance: IMATINIB MESYLATE
     Indication: MALIGNANT CONNECTIVE TISSUE NEOPLASM
     Route: 048
     Dates: start: 20160505

REACTIONS (2)
  - Confusional state [None]
  - Diarrhoea [None]

NARRATIVE: CASE EVENT DATE: 20170228
